FAERS Safety Report 16095570 (Version 1)
Quarter: 2019Q1

REPORT INFORMATION
  Report Type: Spontaneous
  Country: US (occurrence: US)
  Receive Date: 20190320
  Receipt Date: 20190320
  Transmission Date: 20190418
  Serious: No
  Sender: FDA-Public Use
  Company Number: US-ASTELLAS-2018US029856

PATIENT
  Age: 51 Year
  Sex: Female
  Weight: 29 kg

DRUGS (2)
  1. CRESEMBA [Suspect]
     Active Substance: ISAVUCONAZONIUM SULFATE
     Indication: HAEMOPTYSIS
  2. CRESEMBA [Suspect]
     Active Substance: ISAVUCONAZONIUM SULFATE
     Indication: ASPERGILLOMA
     Dosage: 186 MG, ONCE DAILY (MINIMAL LOADING DOSE OF TWO 186 MG CAPSULES FOR 1 WEEK  THE FIRST DAY)
     Route: 065

REACTIONS (9)
  - Chest discomfort [Not Recovered/Not Resolved]
  - Muscle spasms [Not Recovered/Not Resolved]
  - Nausea [Not Recovered/Not Resolved]
  - Lip dry [Not Recovered/Not Resolved]
  - Localised oedema [Not Recovered/Not Resolved]
  - Throat irritation [Not Recovered/Not Resolved]
  - Feeling hot [Not Recovered/Not Resolved]
  - Oedema peripheral [Not Recovered/Not Resolved]
  - Underdose [Unknown]
